FAERS Safety Report 4767174-4 (Version None)
Quarter: 2005Q3

REPORT INFORMATION
  Report Type: 
  Country: None (occurrence: None)
  Receive Date: 20050909
  Receipt Date: 20050909
  Transmission Date: 20060218
  Serious: Yes (Hospitalization)
  Sender: FDA-Public Use
  Company Number: None

PATIENT
  Age: 70 Year
  Sex: Male
  Weight: 48.0813 kg

DRUGS (4)
  1. ATIVAN [Suspect]
     Dosage: 0.5 MG ONE TIME IV
     Route: 042
     Dates: start: 20050831, end: 20050831
  2. OXYCODONE 5MG [Suspect]
     Indication: PAIN
     Dosage: 5 MG-10 MG Q4-6 HRS PRN PO
     Route: 048
     Dates: start: 20050727, end: 20050908
  3. MORPHINE [Concomitant]
  4. FENTANYL [Concomitant]

REACTIONS (6)
  - CONFUSIONAL STATE [None]
  - COUGH [None]
  - MENTAL STATUS CHANGES [None]
  - OEDEMA PERIPHERAL [None]
  - OVERDOSE [None]
  - SEDATION [None]
